FAERS Safety Report 10651693 (Version 3)
Quarter: 2015Q1

REPORT INFORMATION
  Report Type: Spontaneous
  Country: AR (occurrence: AR)
  Receive Date: 20141215
  Receipt Date: 20150310
  Transmission Date: 20150720
  Serious: Yes (Hospitalization, Other)
  Sender: FDA-Public Use
  Company Number: AR-PFIZER INC-2014332053

PATIENT
  Age: 63 Year
  Sex: Male

DRUGS (1)
  1. SUTENT [Suspect]
     Active Substance: SUNITINIB MALATE
     Indication: METASTATIC RENAL CELL CARCINOMA
     Dosage: 50 MG, ONCE A DAY (2 WEEKS ON, 1 WEEK OFF)
     Route: 048
     Dates: start: 20140127, end: 20140609

REACTIONS (6)
  - Haemorrhage urinary tract [Recovering/Resolving]
  - Renal disorder [Recovered/Resolved]
  - Weight decreased [Not Recovered/Not Resolved]
  - Urethral obstruction [Recovering/Resolving]
  - Anaemia [Recovered/Resolved]
  - Haemorrhage [Recovering/Resolving]

NARRATIVE: CASE EVENT DATE: 2014
